FAERS Safety Report 9400242 (Version 5)
Quarter: 2013Q3

REPORT INFORMATION
  Report Type: Report from Study
  Country: CA (occurrence: CA)
  Receive Date: 20130715
  Receipt Date: 20130828
  Transmission Date: 20140515
  Serious: Yes (Death, Hospitalization)
  Sender: FDA-Public Use
  Company Number: CA-BAYER-2013-032924

PATIENT
  Age: 77 Year
  Sex: Female
  Weight: 70.7 kg

DRUGS (7)
  1. REGORAFENIB [Suspect]
     Indication: COLON CANCER
     Dosage: 160 MG, QD
     Route: 048
     Dates: start: 20130222, end: 20130301
  2. WARFARIN [Concomitant]
     Indication: DEEP VEIN THROMBOSIS
     Dosage: 1 MG DAILY
     Route: 048
     Dates: start: 2010
  3. WARFARIN [Concomitant]
     Indication: ATRIAL FIBRILLATION
  4. METOPROLOL [Concomitant]
     Indication: HYPERTENSION
     Dosage: 100 MG DAILY
     Route: 048
     Dates: start: 2003
  5. ZOCOR [Concomitant]
     Indication: BLOOD CHOLESTEROL
     Dosage: 40 MG DAILY
     Route: 048
     Dates: start: 2003
  6. EZETIMIBE [Concomitant]
     Indication: BLOOD CHOLESTEROL
     Dosage: 10 MG DAILY
     Route: 048
     Dates: start: 2005
  7. ACTONEL [Concomitant]
     Indication: OSTEOPOROSIS
     Dosage: 150 MG DAILY
     Route: 048
     Dates: start: 2005

REACTIONS (2)
  - International normalised ratio increased [Not Recovered/Not Resolved]
  - General physical health deterioration [Fatal]
